FAERS Safety Report 6452919-8 (Version None)
Quarter: 2009Q4

REPORT INFORMATION
  Report Type: 
  Country: None (occurrence: None)
  Receive Date: 20091124
  Receipt Date: 20091113
  Transmission Date: 20100525
  Serious: Yes (Life-Threatening, Hospitalization, Other)
  Sender: FDA-Public Use
  Company Number: FR-BAYER-200935833GPV

PATIENT
  Age: 48 Year
  Sex: Male

DRUGS (4)
  1. CIFLOX [Suspect]
     Indication: PROSTATITIS
     Dosage: UNIT DOSE: 400 MG
     Route: 042
     Dates: start: 20091014, end: 20091014
  2. CIFLOX [Suspect]
     Dosage: UNIT DOSE: 500 MG
     Route: 048
     Dates: start: 20091001, end: 20091014
  3. AUGMENTIN [Concomitant]
     Indication: BRONCHITIS
     Route: 065
  4. AMIKLIN [Concomitant]
     Indication: BRONCHITIS
     Route: 065

REACTIONS (4)
  - COMA [None]
  - MALAISE [None]
  - MYOCLONUS [None]
  - STATUS EPILEPTICUS [None]
